FAERS Safety Report 20430547 (Version 1)
Quarter: 2022Q1

REPORT INFORMATION
  Report Type: Report from Study
  Country: FR (occurrence: FR)
  Receive Date: 20220204
  Receipt Date: 20220204
  Transmission Date: 20220423
  Serious: Yes (Hospitalization, Other)
  Sender: FDA-Public Use
  Company Number: FR-SERVIER-S20010424

PATIENT

DRUGS (7)
  1. ONCASPAR [Suspect]
     Active Substance: PEGASPARGASE
     Indication: Acute lymphocytic leukaemia
     Dosage: 4400 IU, QD, D15
     Route: 042
     Dates: start: 20200805
  2. TN UNSPECIFIED [Concomitant]
     Indication: Acute lymphocytic leukaemia
     Dosage: 1810 MG, D1, D29
     Route: 042
     Dates: start: 20200722, end: 20200825
  3. TN UNSPECIFIED [Concomitant]
     Indication: Acute lymphocytic leukaemia
     Dosage: 15 MG, D1 TO D14, D29 TO D42
     Route: 048
     Dates: start: 20200722, end: 20200907
  4. TN UNSPECIFIED [Concomitant]
     Indication: Acute lymphocytic leukaemia
     Dosage: 2 MG, D15, D22
     Route: 042
     Dates: start: 20200805
  5. TN UNSPECIFIED [Concomitant]
     Indication: Acute lymphocytic leukaemia
     Dosage: 136 MG, D3 TO D6, D10 TO D13, D31 TO D43
     Route: 042
     Dates: start: 20200724
  6. TN UNSPECIFIED [Concomitant]
     Indication: Prophylaxis of nausea and vomiting
  7. TN UNSPECIFIED [Concomitant]
     Indication: Prophylaxis
     Dosage: UNK
     Route: 065

REACTIONS (3)
  - Malnutrition [Not Recovered/Not Resolved]
  - Neutropenia [Not Recovered/Not Resolved]
  - Hyperlipidaemia [Recovered/Resolved]

NARRATIVE: CASE EVENT DATE: 20200825
